FAERS Safety Report 5976664-8 (Version None)
Quarter: 2008Q4

REPORT INFORMATION
  Report Type: 
  Country: None (occurrence: None)
  Receive Date: 20081203
  Receipt Date: 20081201
  Transmission Date: 20090506
  Serious: Yes (Hospitalization)
  Sender: FDA-Public Use
  Company Number: FR-JNJFOC-20081006200

PATIENT
  Sex: Female

DRUGS (7)
  1. SPORANOX [Suspect]
     Indication: ASPERGILLOSIS
     Route: 048
  2. SPORANOX [Suspect]
     Indication: PYREXIA
     Route: 048
  3. SPORANOX [Suspect]
     Indication: COUGH
     Route: 048
  4. ZELITREX [Concomitant]
     Route: 048
  5. ROVALCYTE [Concomitant]
  6. ORACILLINE [Concomitant]
  7. SEROPRAM [Concomitant]

REACTIONS (3)
  - CRYPTOSPORIDIOSIS INFECTION [None]
  - DIARRHOEA [None]
  - VOMITING [None]
